FAERS Safety Report 10581189 (Version 1)
Quarter: 2014Q4

REPORT INFORMATION
  Report Type: Spontaneous
  Country: US (occurrence: None)
  Receive Date: 20141110
  Receipt Date: 20141110
  Transmission Date: 20150529
  Serious: Yes (Disabling)
  Sender: FDA-Public Use
  Company Number: HA14-391-AE

PATIENT
  Age: 58 Year
  Sex: Female
  Weight: 127.01 kg

DRUGS (3)
  1. VICODIN [Concomitant]
     Active Substance: ACETAMINOPHEN\HYDROCODONE BITARTRATE
  2. VOLUME [Concomitant]
  3. GABAPENTIN. [Suspect]
     Active Substance: GABAPENTIN
     Indication: FIBROMYALGIA
     Route: 048

REACTIONS (10)
  - Discomfort [None]
  - Abasia [None]
  - Paralysis [None]
  - Product quality issue [None]
  - Spinal pain [None]
  - Peripheral swelling [None]
  - Arthralgia [None]
  - Delusion [None]
  - Product substitution issue [None]
  - Pain [None]

NARRATIVE: CASE EVENT DATE: 20140928
